FAERS Safety Report 12833407 (Version 4)
Quarter: 2017Q4

REPORT INFORMATION
  Report Type: Report from Study
  Country: JP (occurrence: JP)
  Receive Date: 20161010
  Receipt Date: 20171121
  Transmission Date: 20180320
  Serious: Yes (Death, Other)
  Sender: FDA-Public Use
  Company Number: JP-INCYTE CORPORATION-2016IN006173

PATIENT

DRUGS (5)
  1. OXYCONTIN [Concomitant]
     Active Substance: OXYCODONE HYDROCHLORIDE
     Indication: MYELOFIBROSIS
     Dosage: 10 MG, UNK
     Route: 048
  2. PROTECADIN [Concomitant]
     Active Substance: LAFUTIDINE
     Indication: MYELOFIBROSIS
     Dosage: 20 MG, UNK
     Route: 048
  3. DAIKENCHUTO [Concomitant]
     Active Substance: HERBALS
     Indication: MYELOFIBROSIS
     Dosage: 7.5 G, UNK
     Route: 048
  4. MAGMITT [Concomitant]
     Active Substance: MAGNESIUM OXIDE
     Indication: CONSTIPATION
     Dosage: 1.5 G, UNK
     Route: 048
  5. JAKAVI [Suspect]
     Active Substance: RUXOLITINIB
     Indication: MYELOFIBROSIS
     Dosage: 5 MG, BID
     Route: 048
     Dates: start: 20160721

REACTIONS (4)
  - Cerebral haemorrhage [Fatal]
  - Loss of consciousness [Unknown]
  - Myelofibrosis [Fatal]
  - White blood cell count increased [Unknown]

NARRATIVE: CASE EVENT DATE: 20160725
